FAERS Safety Report 24140856 (Version 1)
Quarter: 2024Q3

REPORT INFORMATION
  Report Type: Spontaneous
  Country: US (occurrence: None)
  Receive Date: 20240725
  Receipt Date: 20240725
  Transmission Date: 20241017
  Serious: Yes (Other)
  Sender: Public
  Company Number: None

PATIENT
  Age: 21 Year
  Sex: Male
  Weight: 90 kg

DRUGS (2)
  1. DEXTROAMPHET SACCHARAT, AMPHET ASPARTATE, DEXTROAMPHET SULFATE AND AMP [Suspect]
     Active Substance: AMPHETAMINE ASPARTATE\AMPHETAMINE SULFATE\DEXTROAMPHETAMINE SACCHARATE\DEXTROAMPHETAMINE SULFATE
     Indication: Attention deficit hyperactivity disorder
     Dosage: OTHER QUANTITY : 30 CAPSULE(S);?
     Route: 048
     Dates: end: 20240615
  2. Kirkland Signature USDA Organic Multivitamin [Concomitant]

REACTIONS (17)
  - Fatigue [None]
  - Lethargy [None]
  - Brain fog [None]
  - Somnolence [None]
  - Headache [None]
  - Depressed mood [None]
  - Diarrhoea [None]
  - Abdominal discomfort [None]
  - Renal pain [None]
  - Chest pain [None]
  - Myocardial infarction [None]
  - Arthralgia [None]
  - Pain in extremity [None]
  - Heart rate increased [None]
  - Cold sweat [None]
  - Cardiac disorder [None]
  - Therapeutic product effect decreased [None]

NARRATIVE: CASE EVENT DATE: 20240615
